FAERS Safety Report 4356844-8 (Version None)
Quarter: 2004Q2

REPORT INFORMATION
  Report Type: 
  Country: None (occurrence: None)
  Receive Date: 20040507
  Receipt Date: 20040428
  Transmission Date: 20050107
  Serious: Yes (Hospitalization)
  Sender: FDA-Public Use
  Company Number: 2004-04-1691

PATIENT
  Age: 66 Year
  Sex: Female

DRUGS (2)
  1. CELESTAMINE TAB [Suspect]
     Indication: SYSTEMIC LUPUS ERYTHEMATOSUS
     Dosage: 1-2 TAB/QD ORAL
     Route: 048
     Dates: start: 19730101
  2. CELESTAMINE TAB [Suspect]

REACTIONS (1)
  - TUBERCULOSIS [None]
